FAERS Safety Report 6185025-0 (Version None)
Quarter: 2009Q2

REPORT INFORMATION
  Report Type: 
  Country: None (occurrence: None)
  Receive Date: 20090511
  Receipt Date: 20090417
  Transmission Date: 20091009
  Serious: No
  Sender: FDA-Public Use
  Company Number: A0779417A

PATIENT
  Age: 58 Year
  Sex: Male

DRUGS (6)
  1. COREG CR [Suspect]
     Dosage: 10MG PER DAY
     Route: 048
     Dates: start: 20081201
  2. WELLCOR [Concomitant]
  3. ZOCOR [Concomitant]
  4. LAMICTAL [Concomitant]
  5. XANAX [Concomitant]
  6. ASPIRIN [Concomitant]

REACTIONS (2)
  - ANXIETY [None]
  - DEPRESSION [None]
